FAERS Safety Report 11092836 (Version 1)
Quarter: 2015Q2

REPORT INFORMATION
  Report Type: Spontaneous
  Country: GB (occurrence: None)
  Receive Date: 20150504
  Receipt Date: 20150504
  Transmission Date: 20150821
  Serious: Yes (Death, Hospitalization)
  Sender: FDA-Public Use
  Company Number: AMAG201500362

PATIENT

DRUGS (2)
  1. BUSCOPAN (HYSCINE BUTYBROMIDE) [Concomitant]
  2. RIENSO (FERUMOXYTOL) INJECTION [Suspect]
     Active Substance: FERUMOXYTOL
     Indication: IMAGING PROCEDURE
     Route: 042
     Dates: start: 20141028, end: 20141028

REACTIONS (2)
  - Myocardial infarction [None]
  - Cardiac arrest [None]

NARRATIVE: CASE EVENT DATE: 20150412
